FAERS Safety Report 9098363 (Version 1)
Quarter: 2013Q1

REPORT INFORMATION
  Report Type: Spontaneous
  Country: US (occurrence: US)
  Receive Date: 20130213
  Receipt Date: 20130213
  Transmission Date: 20140127
  Serious: Yes (Other)
  Sender: FDA-Public Use
  Company Number: US-ROCHE-1048027

PATIENT
  Sex: 0
  Weight: 82.17 kg

DRUGS (7)
  1. ZELBORAF [Suspect]
     Indication: METASTATIC NEOPLASM
     Route: 065
  2. ZELBORAF [Suspect]
     Route: 048
     Dates: end: 20120418
  3. ASA [Concomitant]
     Route: 065
  4. CELLCEPT [Concomitant]
     Dosage: 500X2
     Route: 065
  5. PREDNISONE [Concomitant]
     Route: 065
  6. PRAVACHOL [Concomitant]
     Route: 065
  7. AMBIEN [Concomitant]
     Route: 065

REACTIONS (2)
  - Proteinuria [Recovered/Resolved]
  - Renal impairment [Unknown]
